FAERS Safety Report 8619203-5 (Version None)
Quarter: 2012Q3

REPORT INFORMATION
  Report Type: 
  Country: None (occurrence: None)
  Receive Date: 20120824
  Receipt Date: 20120813
  Transmission Date: 20120928
  Serious: Yes (Hospitalization)
  Sender: FDA-Public Use
  Company Number: US-CELGENE-163-21880-12073138

PATIENT
  Sex: Male

DRUGS (25)
  1. CRESTOR [Concomitant]
     Dosage: 40 MILLIGRAM
     Route: 048
  2. DEXAMETHASONE [Concomitant]
     Dosage: 40 MILLIGRAM
     Route: 048
     Dates: start: 20120724
  3. LANTUS [Concomitant]
     Dosage: 20 UNITS
     Route: 058
  4. LOMOTIL [Concomitant]
     Dosage: 2.5-0.25MG
     Route: 048
  5. METOPROLOL TARTRATE [Concomitant]
     Dosage: 50 MILLIGRAM
     Route: 048
  6. PERCOCET [Concomitant]
     Indication: PAIN
     Dosage: 7.5-325MG
     Route: 048
  7. GLIPIZIDE [Concomitant]
     Dosage: 5 MILLIGRAM
     Route: 065
  8. PRADAXA [Concomitant]
     Dosage: 150 MILLIGRAM
     Route: 065
  9. ADVAIR DISKUS 100/50 [Concomitant]
     Dosage: 250-50MCG
     Route: 065
  10. MINOCYCLINE HCL [Concomitant]
     Dosage: 50 MILLIGRAM
     Route: 048
  11. AMIODARONE HCL [Concomitant]
     Dosage: 200 MILLIGRAM
     Route: 048
  12. ADVIL PM [Concomitant]
     Dosage: 200-38MG
     Route: 048
  13. ALEVE [Concomitant]
     Dosage: 440 MILLIGRAM
     Route: 048
  14. ASCORBIC ACID [Concomitant]
     Route: 065
  15. DURAGESIC-50 [Concomitant]
     Dosage: 50MCG/HR
     Route: 062
  16. ONE TOUCH ULTRA STRIP [Concomitant]
     Route: 065
  17. METFORMIN [Concomitant]
     Route: 065
  18. ASPIRIN [Concomitant]
     Route: 065
  19. OXYCODONE HCL AND ACETAMINOPHEN [Concomitant]
     Route: 065
  20. FLOMAX [Concomitant]
     Dosage: .4 MILLIGRAM
     Route: 048
  21. LACTULOSE [Concomitant]
     Indication: BOWEL PREPARATION
     Dosage: 30 MILLILITER
     Route: 048
  22. PROTONIX [Concomitant]
     Dosage: 40 MILLIGRAM
     Route: 048
  23. BD INSULIN SYRINGE [Concomitant]
     Route: 058
  24. REVLIMID [Suspect]
     Dosage: 15 MILLIGRAM
     Route: 048
     Dates: start: 20120716, end: 20120720
  25. ALLOPURINOL [Concomitant]
     Indication: GOUT
     Dosage: 300 MILLIGRAM
     Route: 048
     Dates: start: 20120724

REACTIONS (3)
  - BLOOD CALCIUM DECREASED [None]
  - FULL BLOOD COUNT DECREASED [None]
  - RENAL IMPAIRMENT [None]
